FAERS Safety Report 14967183 (Version 1)
Quarter: 2018Q3

REPORT INFORMATION
  Report Type: Report from Study
  Country: ES (occurrence: ES)
  Receive Date: 20180604
  Receipt Date: 20180604
  Transmission Date: 20181010
  Serious: Yes (Hospitalization)
  Sender: FDA-Public Use
  Company Number: ES-CHEPLA-C20180276

PATIENT
  Age: 38 Year
  Sex: Female

DRUGS (2)
  1. TRETINOINA (155A) [Suspect]
     Active Substance: TRETINOIN
     Dosage: UNKNOWN
     Route: 065
     Dates: start: 20160729, end: 201607
  2. IDARUBICINA (2550A) [Suspect]
     Active Substance: IDARUBICIN
     Indication: PROLYMPHOCYTIC LEUKAEMIA
     Dosage: UNKNOWN
     Route: 065
     Dates: start: 20160727

REACTIONS (3)
  - Oral herpes [Recovering/Resolving]
  - Fluid retention [Recovered/Resolved]
  - Rash generalised [Recovering/Resolving]

NARRATIVE: CASE EVENT DATE: 20160729
